FAERS Safety Report 10462172 (Version 1)
Quarter: 2014Q3

REPORT INFORMATION
  Report Type: Spontaneous
  Country: US (occurrence: US)
  Receive Date: 20140918
  Receipt Date: 20140918
  Transmission Date: 20150326
  Serious: Yes (Other)
  Sender: FDA-Public Use
  Company Number: US-BRISTOL-MYERS SQUIBB COMPANY-21378351

PATIENT
  Age: 55 Year
  Sex: Male

DRUGS (16)
  1. DICLOFENAC [Concomitant]
     Active Substance: DICLOFENAC
  2. METHOTREXATE [Concomitant]
     Active Substance: METHOTREXATE
  3. FLAXSEED [Concomitant]
     Active Substance: FLAX SEED
  4. NIACIN. [Concomitant]
     Active Substance: NIACIN
  5. ORENCIA [Suspect]
     Active Substance: ABATACEPT
     Indication: RHEUMATOID ARTHRITIS
     Route: 058
     Dates: start: 201310, end: 201405
  6. FISH OIL [Concomitant]
     Active Substance: FISH OIL
  7. TYLENOL [Concomitant]
     Active Substance: ACETAMINOPHEN
  8. METOPROLOL [Concomitant]
     Active Substance: METOPROLOL
  9. MULTIVITAMIN [Concomitant]
     Active Substance: VITAMINS
  10. ALEVE [Concomitant]
     Active Substance: NAPROXEN SODIUM
  11. FLUTICASONE [Concomitant]
     Active Substance: FLUTICASONE\FLUTICASONE PROPIONATE
  12. OMEPRAZOLE. [Concomitant]
     Active Substance: OMEPRAZOLE
  13. MONTELUKAST [Concomitant]
     Active Substance: MONTELUKAST SODIUM
  14. ATORVASTATIN [Concomitant]
     Active Substance: ATORVASTATIN
  15. ECOTRIN [Concomitant]
     Active Substance: ASPIRIN
  16. VITAMIN B12 [Concomitant]
     Active Substance: CYANOCOBALAMIN

REACTIONS (2)
  - Carotid endarterectomy [Unknown]
  - Impaired healing [Unknown]

NARRATIVE: CASE EVENT DATE: 201405
